FAERS Safety Report 12396827 (Version 1)
Quarter: 2016Q2

REPORT INFORMATION
  Report Type: Spontaneous
  Country: US (occurrence: None)
  Receive Date: 20160523
  Receipt Date: 20160523
  Transmission Date: 20160815
  Serious: No
  Sender: FDA-Public Use
  Company Number: None

PATIENT
  Age: 58 Year
  Sex: Male

DRUGS (1)
  1. VANCOMYCIN HCL [Suspect]
     Active Substance: VANCOMYCIN HYDROCHLORIDE
     Indication: RHEUMATOID ARTHRITIS
     Route: 042
     Dates: start: 20160414

REACTIONS (2)
  - Hypoaesthesia [None]
  - Pruritus generalised [None]

NARRATIVE: CASE EVENT DATE: 20160514
